FAERS Safety Report 7106483-0 (Version None)
Quarter: 2010Q4

REPORT INFORMATION
  Report Type: 
  Country: None (occurrence: None)
  Receive Date: 20101116
  Receipt Date: 20101112
  Transmission Date: 20110411
  Serious: Yes (Life-Threatening, Hospitalization)
  Sender: FDA-Public Use
  Company Number: ES-ABBOTT-10P-144-0684999-00

PATIENT
  Age: 49 Year
  Sex: Male
  Weight: 71 kg

DRUGS (3)
  1. KALETRA [Suspect]
     Indication: HEPATITIS C
     Dosage: 800/200 MG DAY (400/100 MG/12H)
     Route: 048
     Dates: start: 20090901
  2. KALETRA [Suspect]
     Indication: HIV INFECTION
  3. PEG-INTRON [Concomitant]
     Indication: HEPATITIS C
     Dates: start: 20090901, end: 20100901

REACTIONS (1)
  - ACUTE MYOCARDIAL INFARCTION [None]
